FAERS Safety Report 5390593-2 (Version None)
Quarter: 2007Q3

REPORT INFORMATION
  Report Type: 
  Country: None (occurrence: None)
  Receive Date: 20070712
  Receipt Date: 20070515
  Transmission Date: 20080115
  Serious: Yes (Other)
  Sender: FDA-Public Use
  Company Number: 6033526

PATIENT

DRUGS (1)
  1. ENALAPRIL MALEATE [Suspect]
     Indication: DRUG USE FOR UNKNOWN INDICATION

REACTIONS (4)
  - ANGIOEDEMA [None]
  - CARDIOLIPIN ANTIBODY POSITIVE [None]
  - COAGULATION FACTOR XII LEVEL INCREASED [None]
  - EOSINOPHILIA [None]
